FAERS Safety Report 5958387-4 (Version None)
Quarter: 2008Q4

REPORT INFORMATION
  Report Type: 
  Country: None (occurrence: None)
  Receive Date: 20081119
  Receipt Date: 20071217
  Transmission Date: 20090506
  Serious: Yes (Life-Threatening)
  Sender: FDA-Public Use
  Company Number: JP-ASTRAZENECA-2004AP03922

PATIENT
  Age: 14462 Day
  Sex: Female
  Weight: 60 kg

DRUGS (5)
  1. NAROPIN [Suspect]
     Indication: ANAESTHESIA
     Route: 008
     Dates: start: 20040727, end: 20040727
  2. PREDONINE [Concomitant]
     Indication: TAKAYASU'S ARTERITIS
     Route: 048
     Dates: start: 19930101, end: 20040726
  3. PREDNISOLONE SODIUM SUCCINATE INJ [Concomitant]
     Indication: TAKAYASU'S ARTERITIS
     Route: 042
     Dates: start: 20040727, end: 20040727
  4. PREDNISOLONE SODIUM SUCCINATE INJ [Concomitant]
     Route: 042
  5. ASPIRIN [Concomitant]

REACTIONS (5)
  - CARDIAC ARREST [None]
  - CONVULSION [None]
  - DRUG TOXICITY [None]
  - VENTRICULAR FIBRILLATION [None]
  - VENTRICULAR TACHYCARDIA [None]
